FAERS Safety Report 4462034-0 (Version None)
Quarter: 2004Q3

REPORT INFORMATION
  Report Type: 
  Country: None (occurrence: None)
  Receive Date: 20040927
  Receipt Date: 20040927
  Transmission Date: 20050211
  Serious: Yes (Life-Threatening, Hospitalization)
  Sender: FDA-Public Use
  Company Number: None

PATIENT
  Age: 37 Year
  Sex: Male
  Weight: 83.9154 kg

DRUGS (2)
  1. LEXAPRO [Suspect]
     Indication: ANXIETY
     Dosage: 10 MG ONCE ORAL
     Route: 048
     Dates: start: 20040923, end: 20040923
  2. LEXAPRO [Suspect]
     Indication: INSOMNIA
     Dosage: 10 MG ONCE ORAL
     Route: 048
     Dates: start: 20040923, end: 20040923

REACTIONS (2)
  - HEART RATE INCREASED [None]
  - MALIGNANT HYPERTENSION [None]
